FAERS Safety Report 17703400 (Version 2)
Quarter: 2020Q2

REPORT INFORMATION
  Report Type: Spontaneous
  Country: FR (occurrence: FR)
  Receive Date: 20200423
  Receipt Date: 20200527
  Transmission Date: 20200714
  Serious: Yes (Hospitalization)
  Sender: FDA-Public Use
  Company Number: FR-BEH-2020116451

PATIENT
  Age: 60 Year
  Sex: Male
  Weight: 100 kg

DRUGS (17)
  1. AMLODIPINE [Concomitant]
     Active Substance: AMLODIPINE BESYLATE
     Dosage: 10 MILLIGRAM, QD (1 CAPSULE IN THE EVENING)
     Route: 065
  2. PERINDOPRIL [Concomitant]
     Active Substance: PERINDOPRIL
     Dosage: 2.5 MILLIGRAM, QD (IN THE MORNING)
     Route: 065
  3. VALGANCICLOVIR. [Concomitant]
     Active Substance: VALGANCICLOVIR
     Dosage: 450 MILLIGRAM, QOD (1 TABL IN THE MORNING, ON ALTERNATE DAY)
     Route: 065
  4. ATORVASTATIN [Concomitant]
     Active Substance: ATORVASTATIN
     Dosage: 20 MILLIGRAM, QD (1 TABLET IN THE EVENING)
     Route: 065
  5. NATRIUM BICARBONAT [Concomitant]
     Dosage: 500 MILLIGRAM, QID (2 CAPSULES IN THE MORNING AND IN THE EVENING)
     Route: 065
  6. ADVAGRAF [Concomitant]
     Active Substance: TACROLIMUS
     Dosage: 6 MILLIGRAM, QD (AT 8 AM)
     Route: 065
  7. KARDEGIC [Concomitant]
     Active Substance: ASPIRIN DL-LYSINE
     Dosage: 75 MILLIGRAM, QD (1 TABLET AT NOON)
     Route: 065
  8. NEBIVOLOL. [Concomitant]
     Active Substance: NEBIVOLOL
     Dosage: 5 MILLIGRAM, BID (1 TABL IN MORNING AND EVENING)
     Route: 065
  9. FEBUXOSTAT. [Concomitant]
     Active Substance: FEBUXOSTAT
     Dosage: 80 MILLIGRAM, QD (1 TABLET IN THE EVENING)
     Route: 065
  10. TAMSULOSINE [Concomitant]
     Active Substance: TAMSULOSIN HYDROCHLORIDE
     Dosage: 0.4 MILLIGRAM, QD (1 TABLET IN THE EVENING)
     Route: 065
  11. EUPRESSYL [URAPIDIL] [Suspect]
     Active Substance: URAPIDIL
     Indication: HYPERTENSION
     Dosage: 180 MILLIGRAM, QD
     Route: 048
     Dates: end: 20200406
  12. CELLCEPT [Concomitant]
     Active Substance: MYCOPHENOLATE MOFETIL\MYCOPHENOLATE MOFETIL HYDROCHLORIDE
     Dosage: 500 MILLIGRAM, QID (2 CAPSULES AT 8 AM, 2 CAPSULES AT 08 PM)
     Route: 065
  13. VILDAGLIPTINE [Concomitant]
     Active Substance: VILDAGLIPTIN
     Dosage: 5 MILLIGRAM, QD (1 TABLET IN THE MORNING)
     Route: 065
  14. PREDNISONE. [Concomitant]
     Active Substance: PREDNISONE
     Dosage: 5 MILLIGRAM, TID (3 TABLETS IN THE MORNING)
     Route: 065
     Dates: start: 20200326
  15. UVEDOSE [Concomitant]
     Active Substance: CHOLECALCIFEROL
     Dosage: 100000 INTERNATIONAL UNIT, QMT
     Route: 065
  16. PRIVIGEN [Suspect]
     Active Substance: HUMAN IMMUNOGLOBULIN G
     Indication: RENAL TRANSPLANT
     Dosage: 80 GRAM PER 1 CYCLE
     Route: 042
     Dates: start: 20200330, end: 20200331
  17. BACTRIM [Concomitant]
     Active Substance: SULFAMETHOXAZOLE\TRIMETHOPRIM
     Dosage: 1 DOSAGE FORM, QOD (1 TABLET EVERY 2 DAYS)
     Route: 065

REACTIONS (6)
  - No adverse event [Unknown]
  - Orthostatic hypotension [Recovered/Resolved]
  - Hypotension [Recovered/Resolved]
  - Product use in unapproved indication [Unknown]
  - Malaise [Recovered/Resolved]
  - Nausea [Recovered/Resolved]

NARRATIVE: CASE EVENT DATE: 20200330
